FAERS Safety Report 5879514-3 (Version None)
Quarter: 2008Q3

REPORT INFORMATION
  Report Type: 
  Country: None (occurrence: None)
  Receive Date: 20080911
  Receipt Date: 20080911
  Transmission Date: 20090109
  Serious: Yes (Hospitalization)
  Sender: FDA-Public Use
  Company Number: None

PATIENT
  Age: 54 Year
  Sex: Male
  Weight: 84 kg

DRUGS (1)
  1. CLOPIDOGREL [Suspect]
     Dosage: 75MG DAILY PO
     Route: 048

REACTIONS (1)
  - LOWER GASTROINTESTINAL HAEMORRHAGE [None]
